FAERS Safety Report 4441303-4 (Version None)
Quarter: 2004Q3

REPORT INFORMATION
  Report Type: 
  Country: None (occurrence: None)
  Receive Date: 20040728
  Receipt Date: 20040329
  Transmission Date: 20050211
  Serious: No
  Sender: FDA-Public Use
  Company Number: USA040363403

PATIENT
  Age: 13 Year
  Sex: Male
  Weight: 64 kg

DRUGS (2)
  1. STRATTERA [Suspect]
     Dosage: 80 MG DAY
     Dates: start: 20040318
  2. DEXTROSTAT (DEXAMFETAMINE SULFATE) [Concomitant]

REACTIONS (2)
  - DECREASED APPETITE [None]
  - DISTURBANCE IN ATTENTION [None]
